FAERS Safety Report 23969111 (Version 1)
Quarter: 2024Q2

REPORT INFORMATION
  Report Type: Spontaneous
  Country: GB (occurrence: None)
  Receive Date: 20240612
  Receipt Date: 20240612
  Transmission Date: 20240716
  Serious: Yes (Death)
  Sender: FDA-Public Use
  Company Number: 2024A134424

PATIENT
  Age: 85 Year
  Sex: Male

DRUGS (1)
  1. ANDEXANET ALFA [Suspect]
     Active Substance: ANDEXANET ALFA
     Indication: Gastrointestinal haemorrhage
     Dosage: 400.0MG UNKNOWN
     Route: 040

REACTIONS (4)
  - Adverse drug reaction [Fatal]
  - Anaphylactic reaction [Fatal]
  - Kounis syndrome [Fatal]
  - Myocardial infarction [Fatal]
